FAERS Safety Report 8953322 (Version 3)
Quarter: 2012Q4

REPORT INFORMATION
  Report Type: 
  Country: AT (occurrence: AT)
  Receive Date: 20121206
  Receipt Date: 20121228
  Transmission Date: 20130627
  Serious: Yes (Death, Hospitalization, Other)
  Sender: FDA-Public Use
  Company Number: AT-JNJFOC-20121201408

PATIENT
  Age: 87 Year
  Sex: Male
  Weight: 90 kg

DRUGS (2)
  1. XARELTO [Suspect]
     Indication: CEREBROVASCULAR ACCIDENT PROPHYLAXIS
     Dosage: 75mg cumulative dose
     Route: 048
     Dates: start: 20121110, end: 20121115
  2. XARELTO [Suspect]
     Indication: ATRIAL FIBRILLATION
     Dosage: 75mg cumulative dose
     Route: 048
     Dates: start: 20121110, end: 20121115

REACTIONS (2)
  - Cardiac failure [Fatal]
  - Melaena [Recovered/Resolved]
